FAERS Safety Report 23122573 (Version 1)
Quarter: 2023Q4

REPORT INFORMATION
  Report Type: Spontaneous
  Country: US (occurrence: US)
  Receive Date: 20231030
  Receipt Date: 20231030
  Transmission Date: 20240109
  Serious: No
  Sender: FDA-Public Use
  Company Number: US-ABBVIE-5468927

PATIENT
  Age: 71 Year
  Weight: 80.285 kg

DRUGS (8)
  1. HUMIRA [Suspect]
     Active Substance: ADALIMUMAB
     Indication: Arthritis reactive
     Dosage: FORM STRENGTH: 40 MG
     Route: 058
     Dates: start: 2018
  2. ASPIRIN [Concomitant]
     Active Substance: ASPIRIN
     Indication: Cardiovascular event prophylaxis
     Dosage: 81MG
  3. BUPROPION [Concomitant]
     Active Substance: BUPROPION
     Indication: Depression
  4. FOLIC ACID [Concomitant]
     Active Substance: FOLIC ACID
     Indication: Adjuvant therapy
  5. EFFEXOR [Concomitant]
     Active Substance: VENLAFAXINE HYDROCHLORIDE
     Indication: Depression
  6. VITAMIN D3 [Concomitant]
     Active Substance: CHOLECALCIFEROL
     Indication: Vitamin supplementation
  7. METHOTREXATE [Concomitant]
     Active Substance: METHOTREXATE
     Indication: Arthritis reactive
  8. VITAMIN B12 [Concomitant]
     Active Substance: CYANOCOBALAMIN
     Indication: Vitamin supplementation

REACTIONS (3)
  - Off label use [Not Recovered/Not Resolved]
  - Wrong technique in product usage process [Not Recovered/Not Resolved]
  - Injection site haemorrhage [Recovered/Resolved]

NARRATIVE: CASE EVENT DATE: 20231009
